FAERS Safety Report 12720099 (Version 2)
Quarter: 2016Q3

REPORT INFORMATION
  Report Type: Spontaneous
  Country: US (occurrence: US)
  Receive Date: 20160907
  Receipt Date: 20160915
  Transmission Date: 20161109
  Serious: No
  Sender: FDA-Public Use
  Company Number: US-PFIZER INC-2016416025

PATIENT
  Sex: Female

DRUGS (1)
  1. ADVIL [Suspect]
     Active Substance: IBUPROFEN
     Dosage: UNK (TAKING 1/2 OF A CHILD^S DOSE)

REACTIONS (2)
  - Drug administered to patient of inappropriate age [Unknown]
  - Feeling abnormal [Unknown]
